FAERS Safety Report 8904112 (Version 1)
Quarter: 2012Q4

REPORT INFORMATION
  Report Type: 
  Country: US (occurrence: US)
  Receive Date: 20121113
  Receipt Date: 20121113
  Transmission Date: 20130627
  Serious: Yes (Hospitalization)
  Sender: FDA-Public Use
  Company Number: PHHY2012US104110

PATIENT
  Age: 10 Year
  Sex: Female

DRUGS (2)
  1. CICLOSPORIN [Suspect]
     Indication: STEM CELL TRANSPLANT
  2. ANTIHYPERTENSIVES [Concomitant]

REACTIONS (12)
  - Pulmonary arterial hypertension [Recovered/Resolved]
  - Respiratory failure [Recovered/Resolved]
  - Hypoxia [Recovered/Resolved]
  - Thrombotic microangiopathy [Recovered/Resolved]
  - Thrombocytopenia [Recovered/Resolved]
  - Anaemia [Unknown]
  - BK virus infection [Recovered/Resolved]
  - Renal failure acute [Recovered/Resolved]
  - Proteinuria [Recovered/Resolved]
  - Hypertension [Recovered/Resolved]
  - Epstein-Barr virus infection [Recovered/Resolved]
  - Bronchiolitis [Unknown]
